FAERS Safety Report 9583586 (Version 1)
Quarter: 2013Q4

REPORT INFORMATION
  Report Type: Spontaneous
  Country: US (occurrence: US)
  Receive Date: 20131002
  Receipt Date: 20131002
  Transmission Date: 20140711
  Serious: No
  Sender: FDA-Public Use
  Company Number: US-AMGEN-USASP2013047922

PATIENT
  Age: 58 Year
  Sex: Male

DRUGS (3)
  1. ENBREL [Suspect]
     Indication: RHEUMATOID ARTHRITIS
     Dosage: 50 MG, QWK
     Route: 065
     Dates: start: 20130501
  2. PLAQUENIL                          /00072602/ [Concomitant]
     Dosage: 200 MG, QD
     Route: 065
  3. METHOTREXATE [Concomitant]
     Dosage: 2.5 MG, QWK
     Route: 065
     Dates: start: 20130705

REACTIONS (2)
  - Semen volume decreased [Not Recovered/Not Resolved]
  - Skin disorder [Not Recovered/Not Resolved]
